FAERS Safety Report 6970044-4 (Version None)
Quarter: 2010Q3

REPORT INFORMATION
  Report Type: 
  Country: None (occurrence: None)
  Receive Date: 20100908
  Receipt Date: 20100907
  Transmission Date: 20110219
  Serious: Yes (Death, Other)
  Sender: FDA-Public Use
  Company Number: JP-BRISTOL-MYERS SQUIBB COMPANY-15274509

PATIENT

DRUGS (1)
  1. PACLITAXEL [Suspect]

REACTIONS (2)
  - PNEUMONITIS [None]
  - RESPIRATORY FAILURE [None]
